FAERS Safety Report 11450160 (Version 1)
Quarter: 2015Q3

REPORT INFORMATION
  Report Type: Spontaneous
  Country: US (occurrence: US)
  Receive Date: 20150903
  Receipt Date: 20150903
  Transmission Date: 20151125
  Serious: No
  Sender: FDA-Public Use
  Company Number: US-ROCHE-1026513

PATIENT
  Sex: Male

DRUGS (5)
  1. RIBASPHERE [Suspect]
     Active Substance: RIBAVIRIN
     Route: 048
     Dates: start: 201110
  2. RIBASPHERE [Suspect]
     Active Substance: RIBAVIRIN
     Route: 048
  3. PEGASYS [Suspect]
     Active Substance: PEGINTERFERON ALFA-2A
     Indication: CHRONIC HEPATITIS C
     Route: 058
     Dates: start: 20110904
  4. TELAPREVIR [Suspect]
     Active Substance: TELAPREVIR
     Indication: CHRONIC HEPATITIS C
     Route: 048
     Dates: start: 20110904
  5. RIBASPHERE [Suspect]
     Active Substance: RIBAVIRIN
     Indication: CHRONIC HEPATITIS C
     Route: 048
     Dates: start: 20110904

REACTIONS (15)
  - Upper-airway cough syndrome [Unknown]
  - Proctalgia [Unknown]
  - Haemorrhoidal haemorrhage [Unknown]
  - Weight decreased [Unknown]
  - Frequent bowel movements [Unknown]
  - Flatulence [Unknown]
  - Anaemia [Unknown]
  - Anorectal discomfort [Unknown]
  - Spinal pain [Unknown]
  - Haemorrhoids [Unknown]
  - Heart rate increased [Unknown]
  - Decreased appetite [Unknown]
  - Skin disorder [Unknown]
  - Constipation [Recovering/Resolving]
  - Platelet count decreased [Unknown]
